FAERS Safety Report 19811593 (Version 6)
Quarter: 2022Q1

REPORT INFORMATION
  Report Type: Report from Study
  Country: US (occurrence: US)
  Receive Date: 20210910
  Receipt Date: 20220211
  Transmission Date: 20220423
  Serious: Yes (Hospitalization, Other)
  Sender: FDA-Public Use
  Company Number: US-ACADIA PHARMACEUTICALS INC.-ACA-2021-PIM-003194

PATIENT
  Sex: Male
  Weight: 80 kg

DRUGS (18)
  1. NUPLAZID [Suspect]
     Active Substance: PIMAVANSERIN TARTRATE
     Indication: Parkinson^s disease psychosis
     Dosage: 34 MILLIGRAM, QD (IN THE MORNING)
     Route: 048
     Dates: start: 2020
  2. NUPLAZID [Suspect]
     Active Substance: PIMAVANSERIN TARTRATE
     Indication: Hallucination
  3. NUPLAZID [Suspect]
     Active Substance: PIMAVANSERIN TARTRATE
     Indication: Delusion
  4. CARBIDOPA\LEVODOPA [Concomitant]
     Active Substance: CARBIDOPA\LEVODOPA
     Dosage: QID
  5. CARBIDOPA\LEVODOPA [Concomitant]
     Active Substance: CARBIDOPA\LEVODOPA
     Dosage: 50/200 MG QHS
  6. AMIODARONE [Concomitant]
     Active Substance: AMIODARONE
     Dosage: 200 MILLIGRAM, QD
  7. VITAMINS [Concomitant]
     Active Substance: VITAMINS
  8. FUROSEMIDE [Concomitant]
     Active Substance: FUROSEMIDE
     Dosage: 20 MILLIGRAM
  9. OMEPRAZOLE [Concomitant]
     Active Substance: OMEPRAZOLE
     Dosage: 20 MILLIGRAM
  10. IRON [Concomitant]
     Active Substance: IRON
     Dosage: 65 MILLIGRAM, QD
  11. DILTIAZEM [Concomitant]
     Active Substance: DILTIAZEM
     Dosage: 120 MILLIGRAM, BID
  12. VITAMIN C [Concomitant]
     Active Substance: ASCORBIC ACID
  13. TYLENOL [Concomitant]
     Active Substance: ACETAMINOPHEN
     Dosage: TWO 500 MG, BID
  14. ZINC [Concomitant]
     Active Substance: ZINC
  15. METFORMIN [Concomitant]
     Active Substance: METFORMIN HYDROCHLORIDE
     Dosage: 1000 MILLIGRAM, QD
  16. XARELTO [Concomitant]
     Active Substance: RIVAROXABAN
     Dosage: 20 MILLIGRAM
  17. HUMALOG [Concomitant]
     Active Substance: INSULIN LISPRO
     Dosage: QID SLIDING SCALE
  18. LANTUS [Concomitant]
     Active Substance: INSULIN GLARGINE
     Dosage: 25 U QAM

REACTIONS (5)
  - Rib fracture [Unknown]
  - Atrial fibrillation [Recovered/Resolved]
  - Postoperative wound infection [Recovered/Resolved]
  - Impaired healing [Recovered/Resolved]
  - Fall [Unknown]

NARRATIVE: CASE EVENT DATE: 20210101
